FAERS Safety Report 9921093 (Version 12)
Quarter: 2016Q3

REPORT INFORMATION
  Report Type: Spontaneous
  Country: US (occurrence: US)
  Receive Date: 20140225
  Receipt Date: 20160807
  Transmission Date: 20161109
  Serious: Yes (Other)
  Sender: FDA-Public Use
  Company Number: US-ROCHE-1242566

PATIENT
  Age: 86 Year
  Sex: Male

DRUGS (14)
  1. LISINOPRIL. [Concomitant]
     Active Substance: LISINOPRIL
  2. FUROSEMIDE. [Concomitant]
     Active Substance: FUROSEMIDE
  3. FLUOXETINE [Concomitant]
     Active Substance: FLUOXETINE HYDROCHLORIDE
     Indication: DEPRESSED MOOD
  4. DIGOXIN. [Concomitant]
     Active Substance: DIGOXIN
  5. AUGMENTIN [Concomitant]
     Active Substance: AMOXICILLIN\CLAVULANATE POTASSIUM
  6. CARVEDILOL. [Concomitant]
     Active Substance: CARVEDILOL
  7. FLUTICASONE [Concomitant]
     Active Substance: FLUTICASONE\FLUTICASONE PROPIONATE
  8. CLOPIDOGREL [Concomitant]
     Active Substance: CLOPIDOGREL BISULFATE
  9. ERIVEDGE [Suspect]
     Active Substance: VISMODEGIB
     Dosage: LAST LOT SHIPPED
     Route: 048
     Dates: start: 20130604
  10. ISOSORBIDE MONONITRATE. [Concomitant]
     Active Substance: ISOSORBIDE MONONITRATE
  11. ERIVEDGE [Suspect]
     Active Substance: VISMODEGIB
     Indication: BASAL CELL CARCINOMA
     Route: 048
     Dates: start: 20130529
  12. ALBUTEROL. [Concomitant]
     Active Substance: ALBUTEROL
  13. VICODIN [Concomitant]
     Active Substance: ACETAMINOPHEN\HYDROCODONE BITARTRATE
     Indication: PAIN
  14. ATORVASTATIN [Concomitant]
     Active Substance: ATORVASTATIN
     Indication: HYPERLIPIDAEMIA

REACTIONS (18)
  - Alopecia [Not Recovered/Not Resolved]
  - Pain [Unknown]
  - Impaired healing [Not Recovered/Not Resolved]
  - Feeling abnormal [Not Recovered/Not Resolved]
  - Eating disorder [Unknown]
  - Fatigue [Recovered/Resolved]
  - Weight decreased [Recovered/Resolved]
  - Irritability [Unknown]
  - Wound [Unknown]
  - Dysuria [Recovered/Resolved]
  - Diarrhoea [Unknown]
  - Malaise [Recovered/Resolved]
  - Skin ulcer [Unknown]
  - Skin lesion [Unknown]
  - Nausea [Recovered/Resolved]
  - Decreased appetite [Recovered/Resolved]
  - Vomiting [Recovering/Resolving]
  - Constipation [Recovered/Resolved]

NARRATIVE: CASE EVENT DATE: 201306
